FAERS Safety Report 8878594 (Version 1)
Quarter: 2012Q4

REPORT INFORMATION
  Report Type: 
  Country: US (occurrence: US)
  Receive Date: 20121025
  Receipt Date: 20121025
  Transmission Date: 20130627
  Serious: Yes (Other)
  Sender: FDA-Public Use
  Company Number: US-AMGEN-USASP2012018196

PATIENT
  Age: 63 Year
  Sex: Female
  Weight: 91.61 kg

DRUGS (14)
  1. ENBREL [Suspect]
     Indication: RHEUMATOID ARTHRITIS
     Dosage: UNK UNK, 2 times/wk
     Route: 058
     Dates: start: 20040622
  2. ENBREL [Suspect]
     Dosage: 25 mg, 2 times/wk
     Route: 058
  3. ENBREL [Suspect]
     Dosage: 25 mg, qwk
     Route: 058
     Dates: start: 20040622
  4. ENBREL [Suspect]
     Dosage: 50 mg, qwk
     Dates: start: 20061227
  5. TREXALL [Concomitant]
     Dosage: UNK
     Dates: start: 2003
  6. METHOTREXATE [Concomitant]
     Dosage: UNK UNK, qwk
     Dates: start: 2003
  7. FOLATE [Concomitant]
     Dosage: 3 mg, qd
  8. ESTRADIOL [Concomitant]
     Dosage: UNK UNK, qd
  9. PROGESTERONE [Concomitant]
     Dosage: UNK UNK, qd
  10. SYNTHROID [Concomitant]
     Dosage: UNK UNK, qd
  11. LEVOXYL [Concomitant]
     Dosage: 0.075 mug, qd
     Route: 048
  12. NAPROXEN [Concomitant]
     Dosage: 500 mg, bid
     Route: 048
  13. L-THYROXINE [Concomitant]
  14. FOLIC ACID [Concomitant]
     Dosage: 1 mg, qd

REACTIONS (20)
  - Eye infection [Recovered/Resolved]
  - Parotitis [Unknown]
  - Skin cancer [Unknown]
  - Hepatic steatosis [Unknown]
  - Musculoskeletal pain [Unknown]
  - Hypertension [Unknown]
  - Red blood cell sedimentation rate increased [Unknown]
  - Rheumatoid arthritis [Unknown]
  - Tremor [Unknown]
  - Hypercholesterolaemia [Recovering/Resolving]
  - Arthralgia [Recovered/Resolved]
  - Malaise [Unknown]
  - Dry eye [Unknown]
  - Stress [Unknown]
  - Osteitis [Unknown]
  - Osteopenia [Unknown]
  - Dyspepsia [Unknown]
  - Foot deformity [Unknown]
  - Aspartate aminotransferase increased [Unknown]
  - Alanine aminotransferase increased [Unknown]
